FAERS Safety Report 5844660-7 (Version None)
Quarter: 2008Q3

REPORT INFORMATION
  Report Type: 
  Country: None (occurrence: None)
  Receive Date: 20080812
  Receipt Date: 20080804
  Transmission Date: 20090109
  Serious: Yes (Hospitalization)
  Sender: FDA-Public Use
  Company Number: 2008001921

PATIENT
  Age: 65 Year
  Sex: Female
  Weight: 69 kg

DRUGS (14)
  1. ERLOTINIB (ERLOTINIB) (ERLOTINIB) [Suspect]
     Indication: NON-SMALL CELL LUNG CANCER
     Dosage: (150 MG, QD)
     Dates: start: 20080626
  2. SUNITINIB/PLACEBO [Suspect]
     Indication: NON-SMALL CELL LUNG CANCER
     Dosage: ORAL
     Route: 048
     Dates: start: 20080626
  3. PRAZEPAM [Concomitant]
  4. SPIRIVA [Concomitant]
  5. SPIRIVA [Concomitant]
  6. SYMBICORT (SYMBICORT) [Concomitant]
  7. LANSOPRAZOLE [Concomitant]
  8. PRIMPERAN TAB [Concomitant]
  9. BRUFEN [Concomitant]
  10. ZINNART [Concomitant]
  11. LOPERAMIDE [Concomitant]
  12. ACETAMINOPHEN [Concomitant]
  13. XYZAL [Concomitant]
  14. ROZEX (METRONIDAZOLE) [Concomitant]

REACTIONS (3)
  - COUGH [None]
  - DYSPNOEA [None]
  - FEBRILE NEUTROPENIA [None]
